FAERS Safety Report 20483176 (Version 1)
Quarter: 2022Q1

REPORT INFORMATION
  Report Type: Spontaneous
  Country: JP (occurrence: JP)
  Receive Date: 20220217
  Receipt Date: 20220217
  Transmission Date: 20220423
  Serious: Yes (Other)
  Sender: FDA-Public Use
  Company Number: JP-TAKEDA-2022TUS010411

PATIENT

DRUGS (3)
  1. FOSRENOL [Suspect]
     Active Substance: LANTHANUM CARBONATE
     Indication: Product used for unknown indication
     Dosage: UNK
     Route: 048
  2. FERRIC CITRATE ANHYDROUS [Concomitant]
     Active Substance: FERRIC CITRATE ANHYDROUS
     Dosage: UNK
     Route: 065
  3. EVOCALCET [Concomitant]
     Active Substance: EVOCALCET
     Dosage: UNK
     Route: 065

REACTIONS (1)
  - Cholangitis [Unknown]
